FAERS Safety Report 15639365 (Version 1)
Quarter: 2018Q4

REPORT INFORMATION
  Report Type: Report from Study
  Country: US (occurrence: US)
  Receive Date: 20181120
  Receipt Date: 20181120
  Transmission Date: 20190205
  Serious: Yes (Hospitalization, Other)
  Sender: FDA-Public Use
  Company Number: US-TESAROUBC-US-2018TSO04562

PATIENT
  Age: 88 Year
  Sex: Female

DRUGS (1)
  1. ZEJULA [Suspect]
     Active Substance: NIRAPARIB
     Indication: OVARIAN CANCER
     Dosage: 100 MG, QD
     Route: 048
     Dates: start: 20180830, end: 2018

REACTIONS (14)
  - Fatigue [Not Recovered/Not Resolved]
  - Underdose [Unknown]
  - Hospitalisation [Unknown]
  - Hospice care [Unknown]
  - Nausea [Recovered/Resolved]
  - Dizziness postural [Recovered/Resolved]
  - Fall [Not Recovered/Not Resolved]
  - Catheter placement [Recovered/Resolved]
  - Abdominal discomfort [Recovered/Resolved]
  - Confusional state [Unknown]
  - Product dose omission [Unknown]
  - Constipation [Recovered/Resolved]
  - Eastern Cooperative Oncology Group performance status worsened [Unknown]
  - Decreased appetite [Not Recovered/Not Resolved]

NARRATIVE: CASE EVENT DATE: 2018
